FAERS Safety Report 15516682 (Version 5)
Quarter: 2019Q2

REPORT INFORMATION
  Report Type: Report from Study
  Country: None (occurrence: US)
  Receive Date: 20181017
  Receipt Date: 20190402
  Transmission Date: 20190711
  Serious: Yes (Hospitalization)
  Sender: FDA-Public Use
  Company Number: US-ABBVIE-18K-163-2519817-00

PATIENT
  Age: 49 Year
  Sex: Female

DRUGS (2)
  1. HUMIRA [Suspect]
     Active Substance: ADALIMUMAB
     Indication: PSORIASIS
  2. HUMIRA [Suspect]
     Active Substance: ADALIMUMAB
     Indication: PSORIATIC ARTHROPATHY
     Route: 058
     Dates: start: 20180927, end: 201902

REACTIONS (24)
  - Injection site bruising [Unknown]
  - Contusion [Unknown]
  - Sinus headache [Unknown]
  - Pain in extremity [Unknown]
  - Arthropod bite [Recovering/Resolving]
  - Papule [Unknown]
  - Arthralgia [Not Recovered/Not Resolved]
  - Drug ineffective [Not Recovered/Not Resolved]
  - Hypotension [Unknown]
  - Joint swelling [Unknown]
  - Dermatitis contact [Recovering/Resolving]
  - Sinus disorder [Not Recovered/Not Resolved]
  - Musculoskeletal stiffness [Unknown]
  - Peripheral swelling [Not Recovered/Not Resolved]
  - Pain [Unknown]
  - Drug ineffective [Unknown]
  - Gait disturbance [Not Recovered/Not Resolved]
  - Ligament sprain [Not Recovered/Not Resolved]
  - Sensitivity to weather change [Unknown]
  - Vision blurred [Not Recovered/Not Resolved]
  - Loss of consciousness [Unknown]
  - Blood potassium decreased [Unknown]
  - Fatigue [Not Recovered/Not Resolved]
  - Back pain [Not Recovered/Not Resolved]

NARRATIVE: CASE EVENT DATE: 2018
